FAERS Safety Report 9469297 (Version 5)
Quarter: 2014Q2

REPORT INFORMATION
  Report Type: Spontaneous
  Country: JP (occurrence: JP)
  Receive Date: 20130821
  Receipt Date: 20140606
  Transmission Date: 20141212
  Serious: Yes (Hospitalization, Other)
  Sender: FDA-Public Use
  Company Number: JP-009507513-1308JPN005711

PATIENT
  Age: 44 Year
  Sex: Female

DRUGS (15)
  1. FOSAPREPITANT DIMEGLUMINE [Suspect]
     Indication: PROPHYLAXIS OF NAUSEA AND VOMITING
     Dosage: DAILY DOSE 150 MG
     Route: 041
     Dates: start: 20130228, end: 20130228
  2. FOSAPREPITANT DIMEGLUMINE [Suspect]
     Dosage: MG, QD CYCLE 5150
     Route: 041
     Dates: start: 20130521, end: 20130521
  3. EPIRUBICIN HYDROCHLORIDE [Suspect]
     Dosage: UNK
     Route: 042
     Dates: start: 20130521, end: 20130521
  4. EPIRUBICIN HYDROCHLORIDE [Suspect]
     Dosage: UNK
     Route: 042
     Dates: start: 20130613, end: 20130613
  5. ALOXI [Concomitant]
     Dosage: UNK
     Dates: start: 20130228
  6. DECADRON PHOSPHATE INJECTION [Concomitant]
     Dosage: UNK
     Dates: start: 20130228
  7. RINDERON VG [Concomitant]
     Dosage: UNK
     Dates: start: 20130308
  8. PREDONINE [Concomitant]
     Dosage: UNK
     Dates: start: 20130308
  9. LOXONIN [Concomitant]
     Dosage: UNK
     Dates: start: 20130308
  10. MARZULENE-S [Concomitant]
     Dosage: UNK
     Dates: start: 20130228
  11. NEUTROGIN [Concomitant]
     Dosage: UNK
     Dates: start: 20130423, end: 20130425
  12. NEUTROGIN [Concomitant]
     Dosage: UNK
     Dates: start: 20130514, end: 20130515
  13. DERMOVATE [Concomitant]
     Dosage: UNK
     Dates: start: 20130521
  14. ATARAX P [Concomitant]
     Dosage: UNK
     Dates: start: 20130521, end: 20130521
  15. CRAVIT [Concomitant]
     Dosage: UNK
     Dates: start: 20130528

REACTIONS (17)
  - Phlebitis [Unknown]
  - Breast cellulitis [Unknown]
  - Agranulocytosis [Unknown]
  - Radiation skin injury [Unknown]
  - Dehydration [Unknown]
  - Renal impairment [Unknown]
  - Platelet count decreased [Unknown]
  - Decreased appetite [Unknown]
  - Constipation [Unknown]
  - Infusion site extravasation [Unknown]
  - Nausea [Unknown]
  - Breast pain [Unknown]
  - Pyrexia [Unknown]
  - Alopecia [Unknown]
  - Malaise [Unknown]
  - Nail disorder [Unknown]
  - Pigmentation disorder [Unknown]
